FAERS Safety Report 7547956-6 (Version None)
Quarter: 2011Q2

REPORT INFORMATION
  Report Type: 
  Country: None (occurrence: None)
  Receive Date: 20110615
  Receipt Date: 20090121
  Transmission Date: 20111010
  Serious: No
  Sender: FDA-Public Use
  Company Number: 2009BI002245

PATIENT
  Sex: Female

DRUGS (3)
  1. TYSABRI [Suspect]
     Indication: MULTIPLE SCLEROSIS
     Route: 042
     Dates: start: 20080922
  2. ZYRTEC [Concomitant]
     Indication: PREMEDICATION
  3. DECADRON [Concomitant]
     Indication: PREMEDICATION
     Route: 042

REACTIONS (18)
  - CONFUSIONAL STATE [None]
  - LOSS OF CONTROL OF LEGS [None]
  - FALL [None]
  - DRUG EFFECT DECREASED [None]
  - VISUAL IMPAIRMENT [None]
  - HYPOAESTHESIA [None]
  - HEADACHE [None]
  - JOINT SPRAIN [None]
  - CHILLS [None]
  - PYREXIA [None]
  - ASTHENIA [None]
  - SINUSITIS [None]
  - OPTIC NEURITIS [None]
  - WEIGHT DECREASED [None]
  - BLOOD PRESSURE INCREASED [None]
  - MUSCLE SPASMS [None]
  - PAIN IN EXTREMITY [None]
  - SINUS CONGESTION [None]
